FAERS Safety Report 9468162 (Version 1)
Quarter: 2013Q3

REPORT INFORMATION
  Report Type: Spontaneous
  Country: NL (occurrence: NL)
  Receive Date: 20130821
  Receipt Date: 20130821
  Transmission Date: 20140515
  Serious: Yes (Other)
  Sender: FDA-Public Use
  Company Number: NL-TEVA-425390ISR

PATIENT
  Age: 37 Year
  Sex: Female

DRUGS (1)
  1. SUMATRIPTAN PCH TABLET OMHULD 50MG [Suspect]
     Dosage: EXTRA INFO: AS NEEDED 2 TIMES A DAY 1 TABLET
     Route: 048
     Dates: start: 20130726, end: 20130727

REACTIONS (3)
  - Angioedema [Recovered/Resolved]
  - Tongue disorder [Recovered/Resolved]
  - Dysphagia [Recovered/Resolved]
